FAERS Safety Report 7076513-3 (Version None)
Quarter: 2010Q4

REPORT INFORMATION
  Report Type: 
  Country: None (occurrence: None)
  Receive Date: 20101101
  Receipt Date: 20101019
  Transmission Date: 20110411
  Serious: Yes (Hospitalization)
  Sender: FDA-Public Use
  Company Number: US-ELI_LILLY_AND_COMPANY-US201010004777

PATIENT
  Sex: Male

DRUGS (1)
  1. HUMATROPE [Suspect]
     Indication: GROWTH RETARDATION
     Dosage: 1.1 MG, EACH EVENING
     Route: 042
     Dates: start: 20100601

REACTIONS (5)
  - COUGH [None]
  - CYSTIC FIBROSIS LUNG [None]
  - CYSTIC FIBROSIS RELATED DIABETES [None]
  - DYSPNOEA [None]
  - OXYGEN SATURATION DECREASED [None]
